FAERS Safety Report 7762656-5 (Version None)
Quarter: 2011Q3

REPORT INFORMATION
  Report Type: 
  Country: None (occurrence: None)
  Receive Date: 20110920
  Receipt Date: 20110908
  Transmission Date: 20111222
  Serious: Yes (Hospitalization)
  Sender: FDA-Public Use
  Company Number: FR-JNJFOC-20110904386

PATIENT
  Age: 47 Year
  Sex: Female
  Weight: 89 kg

DRUGS (11)
  1. REMICADE [Suspect]
     Route: 042
     Dates: start: 20110610
  2. UNKNOWN MEDICATION [Concomitant]
     Indication: HELICOBACTER INFECTION
     Route: 065
     Dates: start: 20110701
  3. REMICADE [Suspect]
     Route: 042
     Dates: start: 20110419
  4. PENTASA [Concomitant]
     Route: 065
  5. REMICADE [Suspect]
     Route: 042
     Dates: start: 20110419
  6. REMICADE [Suspect]
     Indication: CROHN'S DISEASE
     Route: 042
     Dates: start: 20110318
  7. REMICADE [Suspect]
     Route: 042
     Dates: start: 20110304
  8. REMICADE [Suspect]
     Indication: COLITIS ULCERATIVE
     Route: 042
     Dates: start: 20110318
  9. HYDROCORTISONE HEMISUCCINATE [Concomitant]
     Route: 048
  10. REMICADE [Suspect]
     Route: 042
     Dates: start: 20110304
  11. REMICADE [Suspect]
     Route: 042
     Dates: start: 20110610

REACTIONS (7)
  - POLYARTHRITIS [None]
  - ANTINUCLEAR ANTIBODY POSITIVE [None]
  - OEDEMA PERIPHERAL [None]
  - INFUSION RELATED REACTION [None]
  - SYSTEMIC LUPUS ERYTHEMATOSUS [None]
  - AUTOIMMUNE HEPATITIS [None]
  - ASTHENIA [None]
